FAERS Safety Report 6241391-9 (Version None)
Quarter: 2009Q2

REPORT INFORMATION
  Report Type: 
  Country: None (occurrence: None)
  Receive Date: 20090619
  Receipt Date: 20090619
  Transmission Date: 20091009
  Serious: No
  Sender: FDA-Public Use
  Company Number: None

PATIENT
  Age: 55 Year
  Sex: Female
  Weight: 73.4827 kg

DRUGS (1)
  1. ZICAM NASAL GEL [Suspect]
     Indication: NASOPHARYNGITIS
     Dosage: 2 SPRAYS PER NOSTRIL 2-3 TIMES/DAY NASAL
     Route: 045
     Dates: start: 20071001, end: 20090331

REACTIONS (1)
  - HYPOSMIA [None]
